FAERS Safety Report 25503618 (Version 1)
Quarter: 2025Q3

REPORT INFORMATION
  Report Type: Spontaneous
  Country: EU (occurrence: EU)
  Receive Date: 20250702
  Receipt Date: 20250702
  Transmission Date: 20251021
  Serious: Yes (Hospitalization, Other)
  Sender: SANOFI AVENTIS
  Company Number: None

PATIENT
  Age: 90 Year
  Sex: Female

DRUGS (2)
  1. LOVENOX [Suspect]
     Active Substance: ENOXAPARIN SODIUM
     Indication: Prophylaxis
     Dosage: 4000 IU, QD
     Route: 058
     Dates: start: 20250506, end: 20250525
  2. DULCOLAX (BISACODYL) [Suspect]
     Active Substance: BISACODYL
     Indication: Constipation
     Route: 048
     Dates: start: 20250523, end: 20250523

REACTIONS (1)
  - Acute generalised exanthematous pustulosis [Recovering/Resolving]

NARRATIVE: CASE EVENT DATE: 20250524
